FAERS Safety Report 6913569-X (Version None)
Quarter: 2010Q3

REPORT INFORMATION
  Report Type: 
  Country: None (occurrence: None)
  Receive Date: 20100809
  Receipt Date: 20100729
  Transmission Date: 20110219
  Serious: No
  Sender: FDA-Public Use
  Company Number: US-JNJFOC-20100700721

PATIENT
  Sex: Male
  Weight: 83.92 kg

DRUGS (7)
  1. FENTANYL CITRATE [Suspect]
     Indication: ANKYLOSING SPONDYLITIS
     Route: 062
  2. FENTANYL-100 [Suspect]
     Indication: ANKYLOSING SPONDYLITIS
     Route: 062
  3. OXYCODONE [Concomitant]
     Indication: BREAKTHROUGH PAIN
     Route: 048
  4. SIMPONI [Concomitant]
     Indication: INFLAMMATION
     Route: 058
  5. SIMPONI [Concomitant]
     Indication: ANKYLOSING SPONDYLITIS
     Route: 058
  6. PROMETHAZINE [Concomitant]
     Indication: NAUSEA
     Route: 048
  7. METHOCARBAMOL [Concomitant]
     Indication: MUSCLE RELAXANT THERAPY
     Dosage: TID AS NEEDED
     Route: 048

REACTIONS (3)
  - FEELING ABNORMAL [None]
  - INAPPROPRIATE SCHEDULE OF DRUG ADMINISTRATION [None]
  - WRONG TECHNIQUE IN DRUG USAGE PROCESS [None]
